FAERS Safety Report 6410762-X (Version None)
Quarter: 2009Q4

REPORT INFORMATION
  Report Type: 
  Country: None (occurrence: None)
  Receive Date: 20091020
  Receipt Date: 20091020
  Transmission Date: 20100525
  Serious: No
  Sender: FDA-Public Use
  Company Number: None

PATIENT
  Age: 67 Year
  Sex: Female
  Weight: 83.9154 kg

DRUGS (2)
  1. ALENDRONATE 5 MG. APOTEX CORP.-WESTON, FL. [Suspect]
     Indication: OSTEOPENIA
     Dosage: 5 MG. DAILY PO
     Route: 048
     Dates: start: 20090907, end: 20090909
  2. ALENDRONATE SODIUM TABLETS, 35 MG. WATSON, DISTRIB. + MERCK, MANUFACT [Suspect]
     Dosage: 35 MG WEEKLY PO
     Route: 048
     Dates: start: 20091011, end: 20091019

REACTIONS (13)
  - ABDOMINAL PAIN UPPER [None]
  - ASTHENIA [None]
  - CONSTIPATION [None]
  - DECREASED APPETITE [None]
  - DIARRHOEA [None]
  - DYSPEPSIA [None]
  - FEELING OF BODY TEMPERATURE CHANGE [None]
  - FOOD AVERSION [None]
  - GASTROINTESTINAL PAIN [None]
  - INFLUENZA LIKE ILLNESS [None]
  - MUSCULAR WEAKNESS [None]
  - MYALGIA [None]
  - PYREXIA [None]
